FAERS Safety Report 9275097 (Version 1)
Quarter: 2013Q2

REPORT INFORMATION
  Report Type: Spontaneous
  Country: US (occurrence: None)
  Receive Date: 20130501
  Receipt Date: 20130501
  Transmission Date: 20140414
  Serious: Yes (Life-Threatening, Hospitalization)
  Sender: FDA-Public Use
  Company Number: None

PATIENT
  Age: 31 Year
  Sex: Female
  Weight: 131 kg

DRUGS (2)
  1. OXCARBAZEPINE [Suspect]
     Route: 048
     Dates: start: 20130226, end: 20130304
  2. OXCARBAZEPINE [Suspect]
     Route: 048
     Dates: start: 20130304, end: 20130315

REACTIONS (4)
  - Rash [None]
  - Pyrexia [None]
  - Retching [None]
  - Toxic epidermal necrolysis [None]
